FAERS Safety Report 6444673-0 (Version None)
Quarter: 2009Q4

REPORT INFORMATION
  Report Type: 
  Country: None (occurrence: None)
  Receive Date: 20091118
  Receipt Date: 20091112
  Transmission Date: 20100525
  Serious: Yes (Death, Other)
  Sender: FDA-Public Use
  Company Number: HU-ELI_LILLY_AND_COMPANY-HU200910002347

PATIENT
  Age: 60 Year
  Sex: Male

DRUGS (3)
  1. XIGRIS [Suspect]
     Indication: BRONCHOPULMONARY ASPERGILLOSIS
     Dosage: 12 D/F, UNKNOWN
     Route: 042
     Dates: start: 20091009
  2. ANTIBIOTICS [Concomitant]
     Dosage: UNK, UNKNOWN
     Route: 065
  3. ANTIMYCOTICS FOR SYSTEMIC USE [Concomitant]
     Dosage: UNK, UNKNOWN
     Route: 065

REACTIONS (2)
  - MULTI-ORGAN FAILURE [None]
  - SEPSIS [None]
